FAERS Safety Report 25766453 (Version 1)
Quarter: 2025Q3

REPORT INFORMATION
  Report Type: Spontaneous
  Country: JP (occurrence: JP)
  Receive Date: 20250905
  Receipt Date: 20250905
  Transmission Date: 20251020
  Serious: Yes (Death, Hospitalization, Other)
  Sender: AZURITY PHARMACEUTICALS
  Company Number: JP-AZURITY PHARMACEUTICALS, INC.-AZR202508-002648

PATIENT
  Age: 86 Year
  Sex: Female

DRUGS (2)
  1. BENDAMUSTINE HYDROCHLORIDE [Suspect]
     Active Substance: BENDAMUSTINE HYDROCHLORIDE
     Indication: B-cell lymphoma unclassifiable
     Route: 065
  2. RITUXIMAB [Suspect]
     Active Substance: RITUXIMAB
     Indication: B-cell lymphoma unclassifiable
     Route: 065

REACTIONS (6)
  - Acute febrile neutrophilic dermatosis [Recovered/Resolved]
  - Cerebral aspergillosis [Fatal]
  - Brain abscess [Fatal]
  - Cytomegalovirus viraemia [Recovered/Resolved]
  - Pancytopenia [Not Recovered/Not Resolved]
  - Myelodysplastic syndrome [Unknown]
